FAERS Safety Report 9377117 (Version 1)
Quarter: 2013Q3

REPORT INFORMATION
  Report Type: Spontaneous
  Country: ES (occurrence: ES)
  Receive Date: 20130701
  Receipt Date: 20130701
  Transmission Date: 20140515
  Serious: Yes (Death, Hospitalization)
  Sender: FDA-Public Use
  Company Number: ES-PFIZER INC-2013193418

PATIENT
  Age: 78 Year
  Sex: Female

DRUGS (9)
  1. TAZOCEL [Suspect]
     Dosage: 2 G, 3X/DAY
     Route: 042
     Dates: start: 20121128, end: 20121220
  2. ADIRO [Interacting]
     Dosage: 100 MG, 1X/DAY
     Route: 048
     Dates: start: 20121128, end: 20121220
  3. HIBOR [Interacting]
     Indication: ATRIAL FIBRILLATION
     Dosage: 7500 IU, 1X/DAY
     Route: 058
     Dates: start: 20121203, end: 20121209
  4. HIBOR [Interacting]
     Dosage: 3500 IU, 1X/DAY
     Route: 058
     Dates: start: 20121210, end: 20121215
  5. HIBOR [Interacting]
     Dosage: 2500 IU, 1X/DAY
     Route: 058
     Dates: start: 20121216, end: 20121220
  6. METOCLOPRAMIDE [Concomitant]
     Indication: NAUSEA
     Dosage: 10 MG, 3X/DAY
     Route: 042
     Dates: start: 20121211
  7. TRAMADOL [Concomitant]
     Indication: PAIN
     Dosage: 100 MG, 3X/DAY
     Route: 042
     Dates: start: 20121211
  8. ACETAMINOPHEN [Concomitant]
     Indication: PAIN
     Dosage: 1 G, 3X/DAY
     Route: 042
     Dates: start: 20121128
  9. METAMIZOLE [Concomitant]
     Indication: PAIN
     Dosage: 2 G, 3X/DAY
     Route: 042
     Dates: start: 20121128

REACTIONS (2)
  - Subdural haematoma [Fatal]
  - Drug interaction [Fatal]
